FAERS Safety Report 15662638 (Version 2)
Quarter: 2019Q1

REPORT INFORMATION
  Report Type: Spontaneous
  Country: US (occurrence: US)
  Receive Date: 20181127
  Receipt Date: 20190102
  Transmission Date: 20190417
  Serious: No
  Sender: FDA-Public Use
  Company Number: US-SANOFI-AVENTIS-2010SA038352

PATIENT
  Age: 35 Year
  Sex: Female

DRUGS (3)
  1. LANTUS SOLOSTAR [Suspect]
     Active Substance: INSULIN GLARGINE
     Dosage: 68 IU, QD
     Route: 065
  2. LANTUS SOLOSTAR [Suspect]
     Active Substance: INSULIN GLARGINE
     Indication: TYPE 2 DIABETES MELLITUS
     Dosage: 28 DF,QD
     Route: 058
     Dates: start: 2008
  3. LANTUS SOLOSTAR [Suspect]
     Active Substance: INSULIN GLARGINE
     Dosage: 35 DF,UNK
     Route: 058
     Dates: start: 201006

REACTIONS (8)
  - Hyperglycaemia [Not Recovered/Not Resolved]
  - Product odour abnormal [Unknown]
  - Headache [Unknown]
  - Drug ineffective [Unknown]
  - Device dispensing error [Unknown]
  - Tremor [Unknown]
  - Dry mouth [Unknown]
  - Malaise [Unknown]
